FAERS Safety Report 10405129 (Version 1)
Quarter: 2014Q3

REPORT INFORMATION
  Report Type: Spontaneous
  Country: US (occurrence: None)
  Receive Date: 20140820
  Receipt Date: 20140820
  Transmission Date: 20150326
  Serious: Yes (Other)
  Sender: FDA-Public Use
  Company Number: US-H14001-14-00381

PATIENT
  Age: 68 Year
  Sex: Male

DRUGS (1)
  1. LORAZEPAM (LORAZEPAM) (UNKNOWN) (LORAZEPAM) [Suspect]
     Active Substance: LORAZEPAM
     Indication: PROPHYLAXIS AGAINST ALCOHOLIC WITHDRAWAL SYNDROME

REACTIONS (4)
  - Sedation [None]
  - Post procedural complication [None]
  - Respiratory distress [None]
  - Alcohol withdrawal syndrome [None]
